FAERS Safety Report 23960359 (Version 2)
Quarter: 2024Q2

REPORT INFORMATION
  Report Type: Spontaneous
  Country: US (occurrence: US)
  Receive Date: 20240611
  Receipt Date: 20240612
  Transmission Date: 20240715
  Serious: No
  Sender: FDA-Public Use
  Company Number: US-BRISTOL-MYERS SQUIBB COMPANY-2024-093825

PATIENT
  Age: 34 Year
  Sex: Female

DRUGS (2)
  1. THALOMID [Suspect]
     Active Substance: THALIDOMIDE
     Indication: Product used for unknown indication
     Dates: start: 202302
  2. THALOMID [Suspect]
     Active Substance: THALIDOMIDE
     Dates: start: 20230216

REACTIONS (3)
  - Product dispensing error [Unknown]
  - Insurance issue [Unknown]
  - Therapy interrupted [Unknown]
